FAERS Safety Report 5670571-6 (Version None)
Quarter: 2008Q1

REPORT INFORMATION
  Report Type: 
  Country: None (occurrence: None)
  Receive Date: 20080318
  Receipt Date: 20080304
  Transmission Date: 20080703
  Serious: Yes (Other)
  Sender: FDA-Public Use
  Company Number: US-AMGEN-STX268307

PATIENT
  Sex: Female

DRUGS (4)
  1. ENBREL [Suspect]
     Indication: RHEUMATOID ARTHRITIS
     Route: 058
     Dates: start: 20001201
  2. METHOTREXATE [Concomitant]
     Route: 048
     Dates: start: 20000101, end: 20010101
  3. REMICADE [Concomitant]
  4. HUMIRA [Concomitant]

REACTIONS (1)
  - COELIAC DISEASE [None]
